FAERS Safety Report 5232676-3 (Version None)
Quarter: 2007Q1

REPORT INFORMATION
  Report Type: 
  Country: None (occurrence: None)
  Receive Date: 20070206
  Receipt Date: 20070206
  Transmission Date: 20070707
  Serious: Yes (Other)
  Sender: FDA-Public Use
  Company Number: None

PATIENT
  Age: 55 Year
  Sex: Female
  Weight: 68.0396 kg

DRUGS (1)
  1. VYTORIN [Suspect]
     Indication: HYPERCHOLESTEROLAEMIA
     Dosage: 10-80 ONE DAILY PO
     Route: 048
     Dates: start: 20050901, end: 20061101

REACTIONS (10)
  - BLISTER [None]
  - CONTUSION [None]
  - DYSPHONIA [None]
  - LARYNGITIS [None]
  - ONYCHOMADESIS [None]
  - PAIN IN EXTREMITY [None]
  - PLATELET COUNT DECREASED [None]
  - SKIN ATROPHY [None]
  - SKIN HAEMORRHAGE [None]
  - STOMATITIS [None]
